FAERS Safety Report 24264879 (Version 1)
Quarter: 2024Q3

REPORT INFORMATION
  Report Type: Spontaneous
  Country: CN (occurrence: CN)
  Receive Date: 20240829
  Receipt Date: 20240829
  Transmission Date: 20241016
  Serious: Yes (Hospitalization)
  Sender: DR REDDYS
  Company Number: None

PATIENT
  Age: 76 Year
  Sex: Male

DRUGS (8)
  1. CLOPIDOGREL BISULFATE [Suspect]
     Active Substance: CLOPIDOGREL BISULFATE
     Indication: Hypoaesthesia
     Dosage: 75MG,QD
     Route: 048
     Dates: start: 20240814, end: 20240819
  2. CLOPIDOGREL BISULFATE [Suspect]
     Active Substance: CLOPIDOGREL BISULFATE
     Indication: Dysarthria
  3. CLOPIDOGREL BISULFATE [Suspect]
     Active Substance: CLOPIDOGREL BISULFATE
     Indication: Hypertension
  4. CLOPIDOGREL BISULFATE [Suspect]
     Active Substance: CLOPIDOGREL BISULFATE
     Indication: Diabetes mellitus
  5. ASPIRIN [Suspect]
     Active Substance: ASPIRIN
     Indication: Dysarthria
     Dosage: 100MG,QD
     Route: 048
     Dates: start: 20240816, end: 20240819
  6. ASPIRIN [Suspect]
     Active Substance: ASPIRIN
     Indication: Hypertension
  7. ASPIRIN [Suspect]
     Active Substance: ASPIRIN
     Indication: Diabetes mellitus
  8. ASPIRIN [Suspect]
     Active Substance: ASPIRIN
     Indication: Hypoaesthesia

REACTIONS (1)
  - Conjunctival hyperaemia [Recovering/Resolving]

NARRATIVE: CASE EVENT DATE: 20240817
